FAERS Safety Report 24452760 (Version 2)
Quarter: 2024Q4

REPORT INFORMATION
  Report Type: Spontaneous
  Country: PL (occurrence: PL)
  Receive Date: 20241017
  Receipt Date: 20241114
  Transmission Date: 20250114
  Serious: Yes (Hospitalization, Other)
  Sender: SANDOZ
  Company Number: PL-SUN PHARMACEUTICAL INDUSTRIES LTD-2024RR-472738

PATIENT
  Age: 72 Year
  Sex: Female

DRUGS (4)
  1. CYCLOPHOSPHAMIDE [Suspect]
     Active Substance: CYCLOPHOSPHAMIDE
     Indication: Chemotherapy
     Dosage: 50 MILLIGRAM
     Route: 065
  2. CAPECITABINE [Suspect]
     Active Substance: CAPECITABINE
     Indication: Chemotherapy
     Dosage: 500 MILLIGRAM
     Route: 065
  3. FULVESTRANT [Suspect]
     Active Substance: FULVESTRANT
     Indication: Product used for unknown indication
     Dosage: 500 MILLIGRAM
     Route: 065
  4. VINORELBINE [Suspect]
     Active Substance: VINORELBINE TARTRATE
     Indication: Chemotherapy
     Dosage: 40 MILLIGRAM
     Route: 048

REACTIONS (3)
  - Sepsis [Unknown]
  - Febrile neutropenia [Unknown]
  - Therapeutic product effect incomplete [Unknown]
